FAERS Safety Report 25582448 (Version 1)
Quarter: 2025Q3

REPORT INFORMATION
  Report Type: Spontaneous
  Country: US (occurrence: US)
  Receive Date: 20250720
  Receipt Date: 20250720
  Transmission Date: 20251021
  Serious: No
  Sender: SANOFI AVENTIS
  Company Number: US-SA-2025SA204072

PATIENT
  Sex: Male

DRUGS (6)
  1. DUPIXENT [Suspect]
     Active Substance: DUPILUMAB
     Indication: Dermatitis atopic
     Dosage: 200 MG, QOW
     Route: 058
     Dates: start: 20240723
  2. CETIRIZINE HCL [Concomitant]
     Active Substance: CETIRIZINE HYDROCHLORIDE
  3. A-HYDROCORT [Concomitant]
     Active Substance: HYDROCORTISONE SODIUM SUCCINATE
  4. MUPIROCIN [Concomitant]
     Active Substance: MUPIROCIN
  5. TACROLIMUS [Concomitant]
     Active Substance: TACROLIMUS
  6. MOMETASONE [Concomitant]
     Active Substance: MOMETASONE

REACTIONS (2)
  - Infection [Unknown]
  - Sleep disorder due to a general medical condition [Recovered/Resolved]
